FAERS Safety Report 4273999-4 (Version None)
Quarter: 2004Q1

REPORT INFORMATION
  Report Type: 
  Country: None (occurrence: None)
  Receive Date: 20040115
  Receipt Date: 20040105
  Transmission Date: 20041129
  Serious: Yes (Other)
  Sender: FDA-Public Use
  Company Number: 2004001060

PATIENT
  Age: 37 Year
  Sex: Female

DRUGS (1)
  1. LUSTRAL (SERTRALINE) [Suspect]
     Indication: ILL-DEFINED DISORDER
     Dosage: 100 MG (DAILY), ORAL
     Route: 048

REACTIONS (2)
  - IMPULSIVE BEHAVIOUR [None]
  - SELF-INJURIOUS IDEATION [None]
